FAERS Safety Report 11428727 (Version 1)
Quarter: 2015Q3

REPORT INFORMATION
  Report Type: Spontaneous
  Country: BR (occurrence: BR)
  Receive Date: 20150828
  Receipt Date: 20150828
  Transmission Date: 20151125
  Serious: Yes (Other)
  Sender: FDA-Public Use
  Company Number: PHHY2015BR103113

PATIENT
  Sex: Female

DRUGS (1)
  1. ACLASTA [Suspect]
     Active Substance: ZOLEDRONIC ACID
     Indication: PRODUCT USED FOR UNKNOWN INDICATION
     Dosage: 5 MG/100 ML, UNK
     Route: 065

REACTIONS (10)
  - Exposed bone in jaw [Unknown]
  - Osteonecrosis of jaw [Unknown]
  - Depression [Unknown]
  - Mouth haemorrhage [Unknown]
  - Oral disorder [Unknown]
  - Deafness [Unknown]
  - Wound [Unknown]
  - Oral discomfort [Unknown]
  - Crying [Unknown]
  - Urinary tract infection [Unknown]
